FAERS Safety Report 4785284-2 (Version None)
Quarter: 2005Q3

REPORT INFORMATION
  Report Type: 
  Country: None (occurrence: None)
  Receive Date: 20050929
  Receipt Date: 20050916
  Transmission Date: 20060218
  Serious: No
  Sender: FDA-Public Use
  Company Number: BR-2005-012490

PATIENT
  Age: 38 Year
  Sex: Female

DRUGS (1)
  1. BETAFERON (INTERFERON BETA - 1B) INJECTION, 250UG [Suspect]
     Indication: MULTIPLE SCLEROSIS
     Dosage: 8 MIU, SUBCUTANEOUS
     Route: 058
     Dates: start: 20010701

REACTIONS (9)
  - ANAEMIA [None]
  - BLINDNESS TRANSIENT [None]
  - DEPRESSION [None]
  - INFLUENZA LIKE ILLNESS [None]
  - INJECTION SITE MASS [None]
  - INJECTION SITE NODULE [None]
  - INJECTION SITE PAIN [None]
  - NERVOUSNESS [None]
  - WEIGHT DECREASED [None]
